FAERS Safety Report 6053314-6 (Version None)
Quarter: 2009Q1

REPORT INFORMATION
  Report Type: 
  Country: None (occurrence: None)
  Receive Date: 20090127
  Receipt Date: 20090120
  Transmission Date: 20090719
  Serious: Yes (Other)
  Sender: FDA-Public Use
  Company Number: A0765140A

PATIENT

DRUGS (2)
  1. FONDAPARINUX [Suspect]
     Indication: DEEP VEIN THROMBOSIS
     Dosage: 7.5MGD PER DAY
     Route: 058
  2. ANTICOAGULANT [Suspect]
     Indication: DEEP VEIN THROMBOSIS
     Route: 048

REACTIONS (1)
  - HAEMARTHROSIS [None]
